FAERS Safety Report 9322143 (Version 3)
Quarter: 2013Q2

REPORT INFORMATION
  Report Type: Spontaneous
  Country: JP (occurrence: JP)
  Receive Date: 20130531
  Receipt Date: 20130604
  Transmission Date: 20140414
  Serious: Yes (Death)
  Sender: FDA-Public Use
  Company Number: JP-JNJFOC-20130516866

PATIENT
  Age: 25 Year
  Sex: Male
  Weight: 39 kg

DRUGS (7)
  1. REMICADE [Suspect]
     Indication: CROHN^S DISEASE
     Route: 042
     Dates: start: 200703
  2. REMICADE [Suspect]
     Indication: CROHN^S DISEASE
     Route: 042
     Dates: start: 200702
  3. REMICADE [Suspect]
     Indication: CROHN^S DISEASE
     Route: 042
     Dates: start: 200701
  4. PENTASA [Concomitant]
     Indication: CROHN^S DISEASE
     Route: 048
  5. MIYA BM [Concomitant]
     Indication: CROHN^S DISEASE
     Route: 048
  6. PROMAC (POLAPREZINE) [Concomitant]
     Indication: GASTRITIS
     Route: 048
  7. ELENTAL [Concomitant]
     Indication: CROHN^S DISEASE
     Route: 048

REACTIONS (2)
  - Anal cancer [Fatal]
  - Crohn^s disease [Unknown]
